FAERS Safety Report 8292818-2 (Version None)
Quarter: 2012Q2

REPORT INFORMATION
  Report Type: 
  Country: None (occurrence: None)
  Receive Date: 20120417
  Receipt Date: 20120214
  Transmission Date: 20120825
  Serious: No
  Sender: FDA-Public Use
  Company Number: US-ASTRAZENECA-2012SE10617

PATIENT
  Age: 79 Year
  Sex: Male
  Weight: 90.3 kg

DRUGS (7)
  1. NEXIUM [Suspect]
     Indication: PHARYNGEAL ULCERATION
     Route: 048
     Dates: start: 20110501
  2. METOPROLOL TARTRATE [Concomitant]
     Indication: HYPERTENSION
  3. LISINOPRIL [Concomitant]
     Indication: HYPERTENSION
  4. AMLODIPINE [Concomitant]
     Indication: HYPERTENSION
  5. METFORMIN HCL [Concomitant]
     Indication: DIABETES MELLITUS
  6. OXYBUTYNIN [Concomitant]
     Indication: BLADDER DISORDER
  7. AMITRIPTYLINE HCL [Concomitant]
     Indication: MUSCLE SPASMS

REACTIONS (6)
  - DYSPHAGIA [None]
  - OFF LABEL USE [None]
  - COUGH [None]
  - REGURGITATION [None]
  - DRUG DOSE OMISSION [None]
  - OESOPHAGEAL OBSTRUCTION [None]
